FAERS Safety Report 4401057-4 (Version None)
Quarter: 2004Q3

REPORT INFORMATION
  Report Type: 
  Country: None (occurrence: None)
  Receive Date: 20040907
  Receipt Date: 20031010
  Transmission Date: 20050211
  Serious: No
  Sender: FDA-Public Use
  Company Number: US-BRISTOL-MYERS SQUIBB COMPANY-12408779

PATIENT
  Age: 48 Year
  Sex: Female
  Weight: 66 kg

DRUGS (1)
  1. COUMADIN [Suspect]
     Indication: THROMBOSIS
     Dosage: TAKEN FOR A ^COUPLE OF WEEKS^, DOSE DETERMINED BY LABORATORY RESULTS; ALSO TAKEN 3 YEARS AGO.
     Route: 048

REACTIONS (1)
  - PLATELET COUNT INCREASED [None]
